FAERS Safety Report 9227177 (Version 1)
Quarter: 2013Q1

REPORT INFORMATION
  Report Type: Spontaneous
  Country: US (occurrence: US)
  Receive Date: 20121012
  Receipt Date: 20121012
  Transmission Date: 20140127
  Serious: No
  Sender: FDA-Public Use
  Company Number: 1000029279

PATIENT
  Age: 49 Year
  Sex: Male

DRUGS (3)
  1. LEXAPRO [Suspect]
     Indication: DEPRESSION
     Route: 048
  2. REBIF (INTERFERON BETA-1A) [Suspect]
     Dosage: 3 DOSES IN ONE WEEK.
     Route: 058
     Dates: start: 20100108
  3. MARIJUANA (CANNABIS SATIVA)(CANNABIS SATIVA) [Concomitant]

REACTIONS (3)
  - Self-injurious ideation [None]
  - Depression [None]
  - Fatigue [None]
